FAERS Safety Report 18555010 (Version 4)
Quarter: 2022Q3

REPORT INFORMATION
  Report Type: Spontaneous
  Country: CA (occurrence: CA)
  Receive Date: 20201127
  Receipt Date: 20220729
  Transmission Date: 20221026
  Serious: Yes (Death, Hospitalization, Other)
  Sender: FDA-Public Use
  Company Number: CA-SAMSUNG BIOEPIS-SB-2020-35221

PATIENT
  Age: 81 Year
  Sex: Female
  Weight: 92 kg

DRUGS (2)
  1. INFLIXIMAB [Suspect]
     Active Substance: INFLIXIMAB
     Indication: Psoriatic arthropathy
     Route: 042
  2. LASIX [Concomitant]
     Active Substance: FUROSEMIDE
     Indication: Product used for unknown indication
     Route: 065

REACTIONS (19)
  - Death [Fatal]
  - Balance disorder [Fatal]
  - Blood pressure fluctuation [Fatal]
  - Cardiac failure [Fatal]
  - Disorientation [Fatal]
  - Fall [Fatal]
  - Hallucination [Fatal]
  - Head injury [Fatal]
  - Heart rate irregular [Fatal]
  - Hypertension [Fatal]
  - Nasopharyngitis [Fatal]
  - Oropharyngeal pain [Fatal]
  - Pyrexia [Fatal]
  - Thrombosis [Fatal]
  - Urinary tract disorder [Fatal]
  - Weight fluctuation [Fatal]
  - Inappropriate schedule of product administration [Fatal]
  - Intentional product use issue [Fatal]
  - Off label use [Fatal]
